FAERS Safety Report 5201810-3 (Version None)
Quarter: 2006Q4

REPORT INFORMATION
  Report Type: 
  Country: None (occurrence: None)
  Receive Date: 20061002
  Receipt Date: 20050816
  Transmission Date: 20070319
  Serious: Yes (Other)
  Sender: FDA-Public Use
  Company Number: US-JNJFOC-20050804131

PATIENT
  Sex: Female

DRUGS (2)
  1. ULTRACET [Suspect]
     Indication: ARTHRALGIA
     Dosage: ORAL
     Route: 048
  2. TEGRETOL [Concomitant]

REACTIONS (1)
  - CONVULSION [None]
